FAERS Safety Report 13400503 (Version 2)
Quarter: 2017Q2

REPORT INFORMATION
  Report Type: Spontaneous
  Country: GB (occurrence: GB)
  Receive Date: 20170404
  Receipt Date: 20170404
  Transmission Date: 20170830
  Serious: Yes (Hospitalization)
  Sender: FDA-Public Use
  Company Number: GB-CIPLA LTD.-2017GB04812

PATIENT

DRUGS (5)
  1. PIPERACILLIN/ TAZOBACTUM [Suspect]
     Active Substance: PIPERACILLIN SODIUM\TAZOBACTAM SODIUM
     Dosage: UNK, FIRST ADMISSION
     Route: 042
  2. RAMIPRIL. [Suspect]
     Active Substance: RAMIPRIL
     Indication: HYPERTENSION
     Dosage: UNK
     Route: 065
  3. PIPERACILLIN/ TAZOBACTUM [Suspect]
     Active Substance: PIPERACILLIN SODIUM\TAZOBACTAM SODIUM
     Dosage: UNK, READMISSION
     Route: 042
  4. WARFARIN [Suspect]
     Active Substance: WARFARIN
     Indication: ANTIPHOSPHOLIPID SYNDROME
     Dosage: UNK
     Route: 065
  5. GENTAMICIN. [Suspect]
     Active Substance: GENTAMICIN
     Dosage: UNK
     Route: 042

REACTIONS (9)
  - Escherichia sepsis [Recovered/Resolved]
  - Adrenal haemorrhage [Recovering/Resolving]
  - Acute kidney injury [Unknown]
  - Adrenal insufficiency [Recovered/Resolved]
  - Gastroenteritis [Recovered/Resolved]
  - Thrombocytopenia [Recovered/Resolved]
  - Microcytic anaemia [Unknown]
  - Hyponatraemia [Unknown]
  - Transaminases increased [Recovered/Resolved]
